FAERS Safety Report 6700355-9 (Version None)
Quarter: 2010Q2

REPORT INFORMATION
  Report Type: 
  Country: None (occurrence: None)
  Receive Date: 20100428
  Receipt Date: 20100421
  Transmission Date: 20101027
  Serious: Yes (Hospitalization)
  Sender: FDA-Public Use
  Company Number: CA-ROCHE-563021

PATIENT
  Sex: Male
  Weight: 73 kg

DRUGS (6)
  1. BEVACIZUMAB [Suspect]
     Dosage: FREQUENCY REPORTED AS CYCLE 1 DAY 1. THERAPY WAS PERMANENTLY DISCONTINUED.
     Route: 042
     Dates: start: 20080429, end: 20080502
  2. ERLOTINIB HYDROCHLORIDE [Suspect]
     Dosage: DOSAGE REGIMEN AS PER PROTOCOL
     Route: 065
  3. FLUOROURACIL [Suspect]
     Route: 065
  4. OXALIPLATIN [Suspect]
     Dosage: 100 MG/M2 IN 250 ML GLUCOSE 5%, 2 HOUR INFUSION (PER PROTOCOL). FORMULATION: INFUSION.
     Route: 065
  5. DILAUDID [Concomitant]
     Dosage: INDICATION FROM REPORT.
     Route: 048
  6. DILAUDID [Concomitant]
     Route: 048

REACTIONS (2)
  - ARTERIOSPASM CORONARY [None]
  - LEFT VENTRICULAR DYSFUNCTION [None]
